FAERS Safety Report 20485564 (Version 3)
Quarter: 2022Q2

REPORT INFORMATION
  Report Type: Spontaneous
  Country: JP (occurrence: JP)
  Receive Date: 20220217
  Receipt Date: 20220408
  Transmission Date: 20220721
  Serious: Yes (Other)
  Sender: FDA-Public Use
  Company Number: JP-BAXTER-2022BAX003333

PATIENT
  Age: 26 Year
  Sex: Female

DRUGS (3)
  1. CYCLOPHOSPHAMIDE [Suspect]
     Active Substance: CYCLOPHOSPHAMIDE
     Indication: Intracranial germ cell tumour
     Dosage: 5 COURSES OF COMBINATION CHEMOTHERAPY, CUMULATIVE DOSE 11 G/M2
     Route: 065
  2. ETOPOSIDE [Suspect]
     Active Substance: ETOPOSIDE
     Indication: Intracranial germ cell tumour
     Dosage: COURSES OF COMBINATION CHEMOTHERAPY, CUMULATIVE DOSE 2.5 G/M2
     Route: 065
  3. CISPLATIN [Suspect]
     Active Substance: CISPLATIN
     Indication: Intracranial germ cell tumour
     Dosage: 5 COURSES OF COMBINATION CHEMOTHERAPY, CUMULATIVE DOSE 450 MG/M2
     Route: 065

REACTIONS (1)
  - Schwannoma [Recovering/Resolving]
